FAERS Safety Report 6248400-1 (Version None)
Quarter: 2009Q2

REPORT INFORMATION
  Report Type: 
  Country: None (occurrence: None)
  Receive Date: 20090629
  Receipt Date: 20090623
  Transmission Date: 20091009
  Serious: Yes (Life-Threatening, Other)
  Sender: FDA-Public Use
  Company Number: PHHY2009BR25200

PATIENT
  Age: 60 Year
  Sex: Female

DRUGS (2)
  1. TRILEPTAL [Suspect]
     Dosage: 1 TABLET (300 MG), BID
  2. TEGRETOL [Suspect]

REACTIONS (4)
  - CEREBRAL CALCIFICATION [None]
  - COMA [None]
  - FEELING ABNORMAL [None]
  - SYNCOPE [None]
